FAERS Safety Report 5201339-2 (Version None)
Quarter: 2006Q4

REPORT INFORMATION
  Report Type: 
  Country: None (occurrence: None)
  Receive Date: 20061016
  Receipt Date: 20011116
  Transmission Date: 20070319
  Serious: Yes (Hospitalization)
  Sender: FDA-Public Use
  Company Number: PHEH2001US08523

PATIENT
  Age: 75 Year
  Sex: Female

DRUGS (5)
  1. MIACALCIN [Suspect]
     Indication: OSTEOPOROSIS
     Dosage: 200 IU/ML, QD, INTRANASAL
     Dates: start: 20011014, end: 20011016
  2. NORVASC [Concomitant]
  3. NITROGLYCERIN TRANSDERMAL SYSTEM (GLYCERYL TRINITRATE) [Concomitant]
  4. POTASSIUM CHLORIDE [Concomitant]
  5. MAXZIDE [Concomitant]

REACTIONS (6)
  - BLISTER [None]
  - CELLULITIS [None]
  - ERYTHEMA [None]
  - PAIN [None]
  - RASH [None]
  - SWELLING [None]
